FAERS Safety Report 18224536 (Version 1)
Quarter: 2020Q3

REPORT INFORMATION
  Report Type: Spontaneous
  Country: US (occurrence: US)
  Receive Date: 20200902
  Receipt Date: 20200902
  Transmission Date: 20201103
  Serious: No
  Sender: FDA-Public Use
  Company Number: US-PURDUE-USA-2020-0150249

PATIENT
  Age: 67 Year
  Sex: Female

DRUGS (1)
  1. OXYCODONE/ ACETAMINOPHEN TABLETS [Suspect]
     Active Substance: ACETAMINOPHEN\OXYCODONE HYDROCHLORIDE
     Indication: PAIN
     Dosage: 1 TABLET EVERY 4?6 HOURS AS NEEDED
     Route: 048
     Dates: start: 20200201, end: 20200227

REACTIONS (3)
  - Drug ineffective [Unknown]
  - Hepatic enzyme increased [Unknown]
  - Pain [Unknown]

NARRATIVE: CASE EVENT DATE: 20200201
